FAERS Safety Report 7994199-8 (Version None)
Quarter: 2011Q4

REPORT INFORMATION
  Report Type: 
  Country: None (occurrence: None)
  Receive Date: 20111220
  Receipt Date: 20110214
  Transmission Date: 20120403
  Serious: No
  Sender: FDA-Public Use
  Company Number: US-GLAXOSMITHKLINE-A0913815A

PATIENT
  Age: 58 Year
  Sex: Female

DRUGS (3)
  1. PROPAFENONE HCL [Suspect]
     Indication: ATRIAL FIBRILLATION
     Dosage: 150MG THREE TIMES PER DAY
     Route: 048
     Dates: start: 20021001, end: 20021001
  2. COREG [Concomitant]
  3. COUMADIN [Concomitant]

REACTIONS (3)
  - EXTRASYSTOLES [None]
  - FEELING ABNORMAL [None]
  - DRUG INEFFECTIVE [None]
